FAERS Safety Report 7668234 (Version 4)
Quarter: 2013Q3

REPORT INFORMATION
  Report Type: Spontaneous
  Country: US (occurrence: US)
  Receive Date: 20101115
  Receipt Date: 20130812
  Transmission Date: 20140515
  Serious: Yes (Hospitalization, Other)
  Sender: FDA-Public Use
  Company Number: US-ROCHE-718657

PATIENT
  Age: 18 Year
  Sex: Male
  Weight: 45.4 kg

DRUGS (1)
  1. ACCUTANE [Suspect]
     Indication: ACNE
     Route: 065
     Dates: start: 200108, end: 200201

REACTIONS (16)
  - Anal fistula [Unknown]
  - Anal abscess [Unknown]
  - Vision blurred [Unknown]
  - Dizziness [Unknown]
  - Somnolence [Unknown]
  - Depression [Unknown]
  - Headache [Unknown]
  - Back pain [Unknown]
  - Coagulopathy [Unknown]
  - Crohn^s disease [Unknown]
  - Intestinal obstruction [Unknown]
  - Large intestine perforation [Recovering/Resolving]
  - Gastrointestinal injury [Unknown]
  - Haemorrhagic anaemia [Unknown]
  - Inflammatory bowel disease [Unknown]
  - Intestinal haemorrhage [Unknown]
